FAERS Safety Report 21536638 (Version 2)
Quarter: 2022Q4

REPORT INFORMATION
  Report Type: Spontaneous
  Country: JP (occurrence: JP)
  Receive Date: 20221101
  Receipt Date: 20221116
  Transmission Date: 20230112
  Serious: Yes (Other)
  Sender: FDA-Public Use
  Company Number: JP-TEVA-2022-JP-2821869

PATIENT
  Age: 55 Year
  Sex: Male

DRUGS (12)
  1. WARFARIN [Interacting]
     Active Substance: WARFARIN
     Indication: Anticoagulant therapy
     Dosage: 2.75 MILLIGRAM DAILY;
     Route: 065
  2. AMIODARONE [Interacting]
     Active Substance: AMIODARONE
     Indication: Hypertrophic cardiomyopathy
     Dosage: 100 MILLIGRAM DAILY;
     Route: 065
  3. DEXAMETHASONE [Interacting]
     Active Substance: DEXAMETHASONE
     Indication: COVID-19 pneumonia
     Dosage: 6 MILLIGRAM DAILY;
     Route: 065
  4. REMDESIVIR [Interacting]
     Active Substance: REMDESIVIR
     Indication: COVID-19 pneumonia
     Dosage: 200 MILLIGRAM DAILY; ON THE FIRST DAY
     Route: 065
  5. REMDESIVIR [Interacting]
     Active Substance: REMDESIVIR
     Dosage: 100 MILLIGRAM DAILY;
     Route: 065
  6. DILTIAZEM [Concomitant]
     Active Substance: DILTIAZEM
     Indication: Hypertrophic cardiomyopathy
     Dosage: 100 MILLIGRAM DAILY;
     Route: 065
  7. BISOPROLOL [Concomitant]
     Active Substance: BISOPROLOL
     Indication: Hypertrophic cardiomyopathy
     Dosage: 7.5 MILLIGRAM DAILY;
     Route: 065
  8. ATORVASTATIN [Concomitant]
     Active Substance: ATORVASTATIN
     Indication: Hypertrophic cardiomyopathy
     Dosage: 10 MILLIGRAM DAILY;
     Route: 065
  9. TENELIGLIPTIN [Concomitant]
     Active Substance: TENELIGLIPTIN
     Indication: Hyperglycaemia
     Dosage: 20 MILLIGRAM DAILY;
     Route: 065
  10. REPAGLINIDE [Concomitant]
     Active Substance: REPAGLINIDE
     Indication: Hyperglycaemia
     Dosage: 1.5 MILLIGRAM DAILY; THREE TIMES A DAY
     Route: 065
  11. ETIZOLAM [Concomitant]
     Active Substance: ETIZOLAM
     Indication: Product used for unknown indication
     Dosage: 1.5 MILLIGRAM DAILY; THREE TIMES A DAY
     Route: 065
  12. LEVOFLOXACIN [Concomitant]
     Active Substance: LEVOFLOXACIN
     Indication: Antibiotic prophylaxis
     Dosage: 500 MILLIGRAM DAILY;
     Route: 065

REACTIONS (4)
  - International normalised ratio increased [Recovering/Resolving]
  - Hyperglycaemia [Unknown]
  - Drug interaction [Unknown]
  - Off label use [Unknown]
